FAERS Safety Report 9918107 (Version 1)
Quarter: 2014Q1

REPORT INFORMATION
  Report Type: Spontaneous
  Country: US (occurrence: US)
  Receive Date: 20140223
  Receipt Date: 20140223
  Transmission Date: 20141002
  Serious: No
  Sender: FDA-Public Use
  Company Number: US-ALLERGAN-1302651US

PATIENT
  Age: 57 Year
  Sex: Male

DRUGS (5)
  1. TAZORAC CREAM 0.05% [Suspect]
     Indication: ACNE
     Dosage: UNK
     Route: 061
  2. ALLOPURINOL [Concomitant]
     Indication: GOUT
     Dosage: UNK
     Route: 048
  3. LEXAPRO [Concomitant]
     Indication: ANXIETY
     Dosage: 5 MG, UNK
     Route: 048
  4. METFORMIN [Concomitant]
     Indication: DIABETES MELLITUS
     Dosage: 500 MG, UNK
     Route: 048
  5. GLYBURIDE [Concomitant]
     Indication: DIABETES MELLITUS
     Dosage: 40 MG, BID
     Route: 048

REACTIONS (1)
  - Application site rash [Recovering/Resolving]
